FAERS Safety Report 8194031-6 (Version None)
Quarter: 2012Q1

REPORT INFORMATION
  Report Type: 
  Country: None (occurrence: None)
  Receive Date: 20120308
  Receipt Date: 20120307
  Transmission Date: 20120608
  Serious: Yes (Other)
  Sender: FDA-Public Use
  Company Number: US-MERCK-1203USA00869

PATIENT
  Age: 78 Year
  Sex: Female

DRUGS (3)
  1. FOSAMAX [Suspect]
     Route: 048
  2. FOSAMAX [Suspect]
     Route: 048
     Dates: start: 20030101, end: 20080501
  3. FOSAMAX [Suspect]
     Route: 048
     Dates: start: 20090101, end: 20090101

REACTIONS (5)
  - LIMB ASYMMETRY [None]
  - FEMUR FRACTURE [None]
  - LOW TURNOVER OSTEOPATHY [None]
  - ANKLE FRACTURE [None]
  - DEVICE COMPONENT ISSUE [None]
